FAERS Safety Report 9817923 (Version 5)
Quarter: 2014Q2

REPORT INFORMATION
  Report Type: Report from Study
  Country: DE (occurrence: DE)
  Receive Date: 20140115
  Receipt Date: 20140515
  Transmission Date: 20141212
  Serious: Yes (Other)
  Sender: FDA-Public Use
  Company Number: DE-VERTEX PHARMACEUTICALS INC-2014-000037

PATIENT
  Age: 45 Year
  Sex: Female

DRUGS (3)
  1. TELAPREVIR [Suspect]
     Indication: CHRONIC HEPATITIS C
     Dosage: 2250 MG, QD
     Route: 048
     Dates: start: 20130515, end: 20130622
  2. RIBAVIRIN [Suspect]
     Indication: CHRONIC HEPATITIS C
     Dosage: UNK
  3. PEGINTERFERON ALFA [Suspect]
     Indication: CHRONIC HEPATITIS C
     Dosage: DOSAGE FORM: UNKNOWN

REACTIONS (4)
  - Leukopenia [Recovered/Resolved]
  - Neutropenia [Unknown]
  - Anaemia [Recovered/Resolved]
  - Thrombocytopenia [Recovered/Resolved]
